FAERS Safety Report 6767615-7 (Version None)
Quarter: 2010Q2

REPORT INFORMATION
  Report Type: 
  Country: None (occurrence: None)
  Receive Date: 20100614
  Receipt Date: 20100611
  Transmission Date: 20101027
  Serious: Yes (Death)
  Sender: FDA-Public Use
  Company Number: PHHY2010KR37762

PATIENT
  Age: 58 Year
  Sex: Male

DRUGS (4)
  1. EXFORGE [Suspect]
     Indication: HYPERTENSION
     Dosage: 160/5
     Route: 048
     Dates: start: 20100602
  2. COAPROVEL [Concomitant]
     Dosage: UNK
     Dates: start: 20090101
  3. TENORMIN [Concomitant]
     Dosage: UNK
     Dates: start: 20090101
  4. LOWDIPINE [Concomitant]

REACTIONS (2)
  - CARDIAC ARREST [None]
  - MYOCARDIAL INFARCTION [None]
